FAERS Safety Report 18567701 (Version 1)
Quarter: 2020Q4

REPORT INFORMATION
  Report Type: Spontaneous
  Country: US (occurrence: US)
  Receive Date: 20201202
  Receipt Date: 20201202
  Transmission Date: 20210114
  Serious: Yes (Other)
  Sender: FDA-Public Use
  Company Number: US-DRREDDYS-USA/USA/20/0129259

PATIENT
  Age: 22 Year
  Sex: Female

DRUGS (1)
  1. ZENATANE [Suspect]
     Active Substance: ISOTRETINOIN
     Indication: PRODUCT USED FOR UNKNOWN INDICATION
     Dosage: 14 AUGUST 2020 1:53:50 PM, 16 SEPTEMBER 2020 11:10:39 AM, 16 OCTOBER 2020 6:05:00 PM
     Route: 048

REACTIONS (4)
  - Tearfulness [Unknown]
  - Depression [Unknown]
  - Impaired work ability [Unknown]
  - Anxiety [Unknown]
